FAERS Safety Report 14349323 (Version 1)
Quarter: 2018Q1

REPORT INFORMATION
  Report Type: Spontaneous
  Country: FR (occurrence: FR)
  Receive Date: 20180104
  Receipt Date: 20180104
  Transmission Date: 20180509
  Serious: Yes (Hospitalization)
  Sender: FDA-Public Use
  Company Number: FR-AUROBINDO-AUR-APL-2017-48533

PATIENT
  Age: 61 Year
  Sex: Female
  Weight: 53.4 kg

DRUGS (1)
  1. TRAMADOL. [Suspect]
     Active Substance: TRAMADOL
     Indication: PAIN
     Dosage: ()
     Route: 048

REACTIONS (1)
  - Hypoxic-ischaemic encephalopathy [Recovered/Resolved]

NARRATIVE: CASE EVENT DATE: 20170613
